FAERS Safety Report 8863037 (Version 1)
Quarter: 2012Q4

REPORT INFORMATION
  Report Type: 
  Country: FR (occurrence: FR)
  Receive Date: 20121026
  Receipt Date: 20121026
  Transmission Date: 20130627
  Serious: Yes (Other)
  Sender: FDA-Public Use
  Company Number: FR-ELI_LILLY_AND_COMPANY-FR201210004659

PATIENT
  Age: 25 Year
  Sex: Male

DRUGS (1)
  1. ZYPADHERA [Suspect]
     Dosage: 210 mg, unknown
     Route: 030

REACTIONS (1)
  - Electrocardiogram PR prolongation [Unknown]
